FAERS Safety Report 4863348-2 (Version None)
Quarter: 2005Q4

REPORT INFORMATION
  Report Type: 
  Country: None (occurrence: None)
  Receive Date: 20051222
  Receipt Date: 20051215
  Transmission Date: 20060501
  Serious: Yes (Other)
  Sender: FDA-Public Use
  Company Number: NL-JNJFOC-20051203794

PATIENT
  Age: 43 Year
  Sex: Female

DRUGS (4)
  1. REMICADE [Suspect]
     Indication: CROHN'S DISEASE
     Route: 042
  2. PENTASA [Concomitant]
     Dates: start: 20051026
  3. LOPERAMIDE [Concomitant]
     Dates: start: 20051011
  4. PREDNISON [Concomitant]
     Dates: start: 20051011, end: 20051110

REACTIONS (1)
  - CARPAL TUNNEL SYNDROME [None]
